FAERS Safety Report 17837234 (Version 1)
Quarter: 2020Q2

REPORT INFORMATION
  Report Type: Spontaneous
  Country: CA (occurrence: CA)
  Receive Date: 20200529
  Receipt Date: 20200529
  Transmission Date: 20200714
  Serious: Yes (Hospitalization)
  Sender: FDA-Public Use
  Company Number: CA-ROCHE-2605046

PATIENT
  Age: 69 Year
  Sex: Female
  Weight: 96 kg

DRUGS (13)
  1. PERINDOPRIL [Suspect]
     Active Substance: PERINDOPRIL
     Indication: PRODUCT USED FOR UNKNOWN INDICATION
     Route: 065
  2. ESTRADIOL. [Concomitant]
     Active Substance: ESTRADIOL
     Route: 030
  3. VENLAFAXINE HYDROCHLORIDE. [Concomitant]
     Active Substance: VENLAFAXINE HYDROCHLORIDE
  4. CHOLECALCIFEROL [Concomitant]
     Active Substance: CHOLECALCIFEROL
  5. XANAX [Concomitant]
     Active Substance: ALPRAZOLAM
     Route: 065
  6. DELATESTRYL [Concomitant]
     Active Substance: TESTOSTERONE ENANTHATE
     Route: 042
  7. ACTEMRA [Suspect]
     Active Substance: TOCILIZUMAB
     Indication: RHEUMATOID ARTHRITIS
     Route: 042
  8. SYNTHROID [Suspect]
     Active Substance: LEVOTHYROXINE SODIUM
     Indication: PRODUCT USED FOR UNKNOWN INDICATION
     Route: 065
  9. COZAAR [Concomitant]
     Active Substance: LOSARTAN POTASSIUM
  10. ZOCOR [Concomitant]
     Active Substance: SIMVASTATIN
     Route: 065
  11. LIPITOR [Suspect]
     Active Substance: ATORVASTATIN CALCIUM
     Indication: PRODUCT USED FOR UNKNOWN INDICATION
     Route: 065
  12. FUROSEMIDE. [Concomitant]
     Active Substance: FUROSEMIDE
  13. APO-NADOL [Suspect]
     Active Substance: NADOLOL
     Indication: PRODUCT USED FOR UNKNOWN INDICATION
     Route: 065

REACTIONS (39)
  - Abdominal pain [Unknown]
  - Bursitis [Unknown]
  - Deep vein thrombosis [Unknown]
  - Heart rate irregular [Unknown]
  - Infusion related reaction [Unknown]
  - Rash [Unknown]
  - Thyroid disorder [Unknown]
  - Urinary tract infection [Unknown]
  - Chest pain [Unknown]
  - Cough [Unknown]
  - Diarrhoea [Unknown]
  - Fatigue [Unknown]
  - Headache [Unknown]
  - Nasopharyngitis [Unknown]
  - Weight decreased [Unknown]
  - Bronchitis [Unknown]
  - Ear congestion [Unknown]
  - Heart rate decreased [Unknown]
  - Movement disorder [Unknown]
  - Bacterial infection [Unknown]
  - Cardiac failure congestive [Unknown]
  - Fungal infection [Unknown]
  - Musculoskeletal pain [Unknown]
  - Oral herpes [Unknown]
  - Rectal haemorrhage [Unknown]
  - Weight increased [Unknown]
  - Arthralgia [Unknown]
  - Asthenia [Unknown]
  - Sciatica [Unknown]
  - Atrial fibrillation [Unknown]
  - Contusion [Unknown]
  - Dysphonia [Unknown]
  - Inflammation [Unknown]
  - Pain in extremity [Unknown]
  - Swelling [Unknown]
  - Blood pressure increased [Unknown]
  - Migraine [Unknown]
  - Myalgia [Unknown]
  - Stress [Unknown]
